FAERS Safety Report 6529266-9 (Version None)
Quarter: 2010Q1

REPORT INFORMATION
  Report Type: 
  Country: None (occurrence: None)
  Receive Date: 20100107
  Receipt Date: 20091230
  Transmission Date: 20100710
  Serious: Yes (Hospitalization)
  Sender: FDA-Public Use
  Company Number: NL-MEDIMMUNE-MEDI-0010066

PATIENT
  Sex: Male
  Weight: 6.98 kg

DRUGS (1)
  1. SYNAGIS [Suspect]
     Dates: start: 20090911, end: 20091204

REACTIONS (2)
  - ERYTHEMA INFECTIOSUM [None]
  - INFLUENZA [None]
